FAERS Safety Report 22324955 (Version 1)
Quarter: 2023Q2

REPORT INFORMATION
  Report Type: Report from Study
  Country: US (occurrence: None)
  Receive Date: 20230516
  Receipt Date: 20230516
  Transmission Date: 20230722
  Serious: Yes (Life-Threatening, Hospitalization, Other)
  Sender: FDA-Public Use
  Company Number: US-ROCHE-3349591

PATIENT

DRUGS (23)
  1. RITUXIMAB [Suspect]
     Active Substance: RITUXIMAB
     Indication: Burkitt^s lymphoma
     Dosage: 03/AUG/2015, 24/AUG/2015, 14/SEP/2015, 05/OCT/2015, 26/OCT/2015
     Route: 065
     Dates: start: 20150713
  2. DOXORUBICIN [Suspect]
     Active Substance: DOXORUBICIN
     Indication: Burkitt^s lymphoma
     Route: 065
     Dates: start: 20150713
  3. DOXORUBICIN [Suspect]
     Active Substance: DOXORUBICIN
     Route: 065
     Dates: start: 20150803
  4. DOXORUBICIN [Suspect]
     Active Substance: DOXORUBICIN
     Route: 065
     Dates: start: 20150824
  5. DOXORUBICIN [Suspect]
     Active Substance: DOXORUBICIN
     Route: 065
     Dates: start: 20150914
  6. DOXORUBICIN [Suspect]
     Active Substance: DOXORUBICIN
     Dosage: 27/OCT/2015
     Route: 065
     Dates: start: 20151005
  7. ETOPOSIDE [Suspect]
     Active Substance: ETOPOSIDE
     Indication: Burkitt^s lymphoma
     Route: 065
     Dates: start: 20150713
  8. ETOPOSIDE [Suspect]
     Active Substance: ETOPOSIDE
     Route: 065
     Dates: start: 20150803
  9. ETOPOSIDE [Suspect]
     Active Substance: ETOPOSIDE
     Route: 065
     Dates: start: 20150824
  10. ETOPOSIDE [Suspect]
     Active Substance: ETOPOSIDE
     Route: 065
     Dates: start: 20150914
  11. ETOPOSIDE [Suspect]
     Active Substance: ETOPOSIDE
     Dosage: 27/OCT/2015
     Route: 065
     Dates: start: 20151005
  12. VINCRISTINE [Suspect]
     Active Substance: VINCRISTINE
     Indication: Burkitt^s lymphoma
     Route: 065
     Dates: start: 20150713
  13. VINCRISTINE [Suspect]
     Active Substance: VINCRISTINE
     Dosage: 24/AUG/2015, 14/SEP/2015
     Route: 065
     Dates: start: 20150803
  14. VINCRISTINE [Suspect]
     Active Substance: VINCRISTINE
     Dosage: 27/OCT/2015
     Route: 065
     Dates: start: 20151005
  15. CYCLOPHOSPHAMIDE [Suspect]
     Active Substance: CYCLOPHOSPHAMIDE
     Indication: Burkitt^s lymphoma
     Route: 065
     Dates: start: 20150717
  16. CYCLOPHOSPHAMIDE [Suspect]
     Active Substance: CYCLOPHOSPHAMIDE
     Route: 065
     Dates: start: 20150807
  17. CYCLOPHOSPHAMIDE [Suspect]
     Active Substance: CYCLOPHOSPHAMIDE
     Route: 065
     Dates: start: 20150828
  18. CYCLOPHOSPHAMIDE [Suspect]
     Active Substance: CYCLOPHOSPHAMIDE
     Route: 065
     Dates: start: 20150918
  19. CYCLOPHOSPHAMIDE [Suspect]
     Active Substance: CYCLOPHOSPHAMIDE
     Dosage: 31/OCT/2015
     Route: 065
     Dates: start: 20151010
  20. PEGFILGRASTIM [Suspect]
     Active Substance: PEGFILGRASTIM
     Indication: Burkitt^s lymphoma
     Dosage: 08/AUG/2015, 29/AUG/2015, 19/SEP/2015, 11/OCT/2015, 02/NOV/2015
     Route: 065
     Dates: start: 20150718
  21. PREDNISONE [Suspect]
     Active Substance: PREDNISONE
     Indication: Burkitt^s lymphoma
     Dosage: 24/AUG/2015, 14/SEP/2015, 05/OCT/2015, 26/OCT/2015
     Route: 065
     Dates: start: 20150803
  22. METHOTREXATE [Suspect]
     Active Substance: METHOTREXATE
     Indication: Burkitt^s lymphoma
     Route: 065
     Dates: start: 20150828
  23. METHOTREXATE [Suspect]
     Active Substance: METHOTREXATE
     Dosage: 14/SEP/2015, 18/SEP/2015, 06/OCT/2015, 09/OCT/2015
     Route: 065
     Dates: start: 20150824

REACTIONS (6)
  - Hypotension [Recovered/Resolved]
  - Neutrophil count decreased [Recovered/Resolved]
  - White blood cell count decreased [Recovered/Resolved]
  - Presyncope [Recovered/Resolved]
  - Dehydration [Recovered/Resolved]
  - Anaemia [Recovered/Resolved]

NARRATIVE: CASE EVENT DATE: 20150903
